FAERS Safety Report 9733816 (Version 1)
Quarter: 2013Q4

REPORT INFORMATION
  Report Type: Spontaneous
  Country: US (occurrence: US)
  Receive Date: 20131205
  Receipt Date: 20131205
  Transmission Date: 20140711
  Serious: Yes (Other)
  Sender: FDA-Public Use
  Company Number: US-MPIJNJ-2013MPI001157

PATIENT
  Age: 60 Year
  Sex: 0

DRUGS (1)
  1. VELCADE [Suspect]
     Indication: PLASMA CELL MYELOMA
     Dosage: 3 MG, Q3WEEKS
     Route: 042
     Dates: start: 20110531, end: 20110531

REACTIONS (1)
  - Multi-organ failure [Unknown]
